FAERS Safety Report 17003972 (Version 2)
Quarter: 2020Q2

REPORT INFORMATION
  Report Type: Spontaneous
  Country: US (occurrence: US)
  Receive Date: 20191107
  Receipt Date: 20200608
  Transmission Date: 20200713
  Serious: No
  Sender: FDA-Public Use
  Company Number: US-MYLANLABS-2019M1101565

PATIENT
  Sex: Female
  Weight: 68 kg

DRUGS (1)
  1. XULANE [Suspect]
     Active Substance: ETHINYL ESTRADIOL\NORELGESTROMIN
     Indication: CONTRACEPTION
     Dosage: ONE WEEKLY FOR 3 WEEKS AND OFF A WEEK
     Route: 062

REACTIONS (1)
  - Wrong technique in product usage process [Unknown]
